FAERS Safety Report 8156646-0 (Version None)
Quarter: 2012Q1

REPORT INFORMATION
  Report Type: 
  Country: None (occurrence: None)
  Receive Date: 20120221
  Receipt Date: 20120221
  Transmission Date: 20120608
  Serious: Yes (Hospitalization)
  Sender: FDA-Public Use
  Company Number: None

PATIENT
  Sex: Female
  Weight: 63 kg

DRUGS (2)
  1. CISPLATIN [Suspect]
     Dosage: 134 MG
  2. ETOPOSIDE [Suspect]
     Dosage: 504 MG

REACTIONS (4)
  - HYPOTENSION [None]
  - SEPSIS [None]
  - FEBRILE NEUTROPENIA [None]
  - PNEUMONIA [None]
